FAERS Safety Report 24079479 (Version 4)
Quarter: 2025Q3

REPORT INFORMATION
  Report Type: Spontaneous
  Country: JP (occurrence: JP)
  Receive Date: 20240711
  Receipt Date: 20250803
  Transmission Date: 20251020
  Serious: Yes (Other)
  Sender: ALEXION PHARMACEUTICALS
  Company Number: 2024A154516

PATIENT
  Age: 69 Year
  Sex: Female
  Weight: 41 kg

DRUGS (16)
  1. FASENRA [Suspect]
     Active Substance: BENRALIZUMAB
     Indication: Asthma
     Dosage: 30 MILLIGRAM, UNK, FREQUENCY: Q8WK
     Dates: start: 20220711, end: 2024
  2. FASENRA [Suspect]
     Active Substance: BENRALIZUMAB
     Dosage: 30 MILLIGRAM, UNK, FREQUENCY: Q8WK
     Dates: start: 20240822, end: 2024
  3. FLUTICASONE PROPIONATE\SALMETEROL XINAFOATE [Concomitant]
     Active Substance: FLUTICASONE PROPIONATE\SALMETEROL XINAFOATE
     Indication: Asthma
     Route: 065
  4. FLUTICASONE PROPIONATE\SALMETEROL XINAFOATE [Concomitant]
     Active Substance: FLUTICASONE PROPIONATE\SALMETEROL XINAFOATE
     Dates: start: 20080722
  5. MONTELUKAST SODIUM [Concomitant]
     Active Substance: MONTELUKAST SODIUM
     Indication: Asthma
  6. MONTELUKAST SODIUM [Concomitant]
     Active Substance: MONTELUKAST SODIUM
     Dosage: 10 MILLIGRAM, QD
     Dates: start: 20071127
  7. THEOPHYLLINE ANHYDROUS [Concomitant]
     Active Substance: THEOPHYLLINE ANHYDROUS
     Route: 065
  8. ALLELOCK [Concomitant]
     Active Substance: OLOPATADINE HYDROCHLORIDE
     Route: 065
  9. SPIRIVA [Concomitant]
     Active Substance: TIOTROPIUM BROMIDE MONOHYDRATE
     Indication: Asthma
     Dosage: DOSE UNKNOWN
     Dates: start: 20090618
  10. ADALAT CC [Concomitant]
     Active Substance: NIFEDIPINE
     Indication: Hypertension
     Dates: start: 20221107
  11. ATORVASTATIN [Concomitant]
     Active Substance: ATORVASTATIN
     Indication: Hyperlipidaemia
     Dates: start: 20071127
  12. FAMOTIDINE [Concomitant]
     Active Substance: FAMOTIDINE
     Indication: Gastritis
     Dates: start: 20190411
  13. CLARITHROMYCIN [Concomitant]
     Active Substance: CLARITHROMYCIN
     Indication: Asthma
     Dates: start: 20220113
  14. XYZAL [Concomitant]
     Active Substance: LEVOCETIRIZINE DIHYDROCHLORIDE
     Indication: Rhinitis allergic
     Dates: start: 20120312
  15. ADALAT [Concomitant]
     Active Substance: NIFEDIPINE
     Indication: Hypertension
     Dates: start: 20221107
  16. TAVNEOS [Suspect]
     Active Substance: AVACOPAN
     Route: 065

REACTIONS (5)
  - Autoimmune nephritis [Recovering/Resolving]
  - Anti-neutrophil cytoplasmic antibody positive vasculitis [Recovering/Resolving]
  - Blood pressure increased [Recovering/Resolving]
  - Head discomfort [Recovering/Resolving]
  - Liver disorder [Unknown]

NARRATIVE: CASE EVENT DATE: 20221107
